FAERS Safety Report 9703738 (Version 3)
Quarter: 2013Q4

REPORT INFORMATION
  Report Type: Spontaneous
  Country: JP (occurrence: JP)
  Receive Date: 20131122
  Receipt Date: 20131203
  Transmission Date: 20140711
  Serious: Yes (Other)
  Sender: FDA-Public Use
  Company Number: JP-ASTRAZENECA-2013SE76015

PATIENT
  Age: 77 Year
  Sex: Female
  Weight: 36 kg

DRUGS (5)
  1. NEXIUM [Suspect]
     Indication: GASTROOESOPHAGEAL REFLUX DISEASE
     Route: 048
     Dates: start: 20121212, end: 20130808
  2. ALESION [Concomitant]
     Indication: PRURITUS
     Route: 048
     Dates: start: 20090406, end: 20130808
  3. VIVIANT [Concomitant]
     Indication: OSTEOPOROSIS
     Route: 048
     Dates: start: 20111024, end: 20130808
  4. PICORULA [Concomitant]
     Indication: CONSTIPATION
     Route: 048
     Dates: start: 20050205, end: 20130808
  5. GASMOTIN [Concomitant]
     Indication: GASTROOESOPHAGEAL REFLUX DISEASE
     Route: 048
     Dates: start: 20110516, end: 20130808

REACTIONS (1)
  - Myelodysplastic syndrome [Not Recovered/Not Resolved]
